FAERS Safety Report 9664727 (Version 5)
Quarter: 2014Q1

REPORT INFORMATION
  Report Type: Spontaneous
  Country: IT (occurrence: IT)
  Receive Date: 20131101
  Receipt Date: 20140106
  Transmission Date: 20141002
  Serious: Yes (Hospitalization)
  Sender: FDA-Public Use
  Company Number: IT-TEVA-441957USA

PATIENT
  Age: 61 Year
  Sex: Male

DRUGS (7)
  1. LEVACT [Suspect]
     Indication: B-CELL LYMPHOMA
     Route: 042
     Dates: start: 20130108, end: 20130402
  2. MABTHERA [Suspect]
     Indication: B-CELL LYMPHOMA
     Route: 042
     Dates: start: 20130612
  3. PANTOPRAZOLE SODIUM [Concomitant]
     Route: 048
     Dates: start: 20130108, end: 20131017
  4. ACICLOVIR [Concomitant]
     Route: 048
     Dates: start: 20130108, end: 20131017
  5. FLUCONAZOLE [Concomitant]
     Route: 048
     Dates: start: 20130108, end: 20131017
  6. DILTIAZEM HYDROCHLORIDE [Concomitant]
     Route: 048
     Dates: start: 20120101, end: 20131017
  7. BECOZYM [Concomitant]
     Route: 048
     Dates: start: 20130108, end: 20131017

REACTIONS (1)
  - Progressive multifocal leukoencephalopathy [Not Recovered/Not Resolved]
